FAERS Safety Report 24010154 (Version 7)
Quarter: 2025Q3

REPORT INFORMATION
  Report Type: Report from Study
  Country: US (occurrence: US)
  Receive Date: 20240625
  Receipt Date: 20250724
  Transmission Date: 20251021
  Serious: Yes (Other)
  Sender: CSL BEHRING
  Company Number: US-BEH-2023165877

PATIENT
  Age: 65 Year
  Sex: Female
  Weight: 102.49 kg

DRUGS (3)
  1. ZEMAIRA [Suspect]
     Active Substance: .ALPHA.1-PROTEINASE INHIBITOR HUMAN
     Indication: Alpha-1 antitrypsin deficiency
     Route: 042
  2. ZEMAIRA [Suspect]
     Active Substance: .ALPHA.1-PROTEINASE INHIBITOR HUMAN
     Indication: Alpha-1 antitrypsin deficiency carrier
     Route: 042
     Dates: start: 2011
  3. ZEMAIRA [Suspect]
     Active Substance: .ALPHA.1-PROTEINASE INHIBITOR HUMAN
     Indication: Chronic obstructive pulmonary disease
     Route: 042
     Dates: start: 20240610, end: 20240610

REACTIONS (23)
  - Product contamination [Unknown]
  - Insurance issue [Not Recovered/Not Resolved]
  - Insurance issue [Unknown]
  - Insurance issue [Not Recovered/Not Resolved]
  - Unevaluable event [Unknown]
  - Sinus congestion [Unknown]
  - Headache [Unknown]
  - Feeling abnormal [Unknown]
  - Erythema [Unknown]
  - Skin warm [Unknown]
  - Tinnitus [Unknown]
  - Nausea [Unknown]
  - Myalgia [Unknown]
  - Arthralgia [Unknown]
  - Bone pain [Unknown]
  - Skin swelling [Unknown]
  - Pruritus [Unknown]
  - Pain of skin [Unknown]
  - Alopecia [Unknown]
  - Erythema [Unknown]
  - Tinnitus [Unknown]
  - Feeling hot [Unknown]
  - Sinus congestion [Unknown]

NARRATIVE: CASE EVENT DATE: 20231201
